FAERS Safety Report 16597154 (Version 1)
Quarter: 2019Q3

REPORT INFORMATION
  Report Type: Spontaneous
  Country: US (occurrence: US)
  Receive Date: 20190718
  Receipt Date: 20190718
  Transmission Date: 20191004
  Serious: Yes (Hospitalization, Disabling, Other)
  Sender: FDA-Public Use
  Company Number: None

PATIENT
  Age: 89 Year
  Sex: Female
  Weight: 63.9 kg

DRUGS (2)
  1. ACTEMRA [Suspect]
     Active Substance: TOCILIZUMAB
     Indication: TEMPORAL ARTERITIS
     Dosage: ?          OTHER STRENGTH:8 MG PER KG;QUANTITY:4 IV DRIPS EVERY 4 W;OTHER FREQUENCY:EVERY 4 WEEKS;OTHER ROUTE:IV DRIP?
  2. ACTEMRA [Suspect]
     Active Substance: TOCILIZUMAB
     Indication: RHEUMATOID ARTHRITIS
     Dosage: ?          OTHER STRENGTH:8 MG PER KG;QUANTITY:4 IV DRIPS EVERY 4 W;OTHER FREQUENCY:EVERY 4 WEEKS;OTHER ROUTE:IV DRIP?

REACTIONS (1)
  - Transient ischaemic attack [None]

NARRATIVE: CASE EVENT DATE: 20190716
